FAERS Safety Report 5644566-2 (Version None)
Quarter: 2008Q1

REPORT INFORMATION
  Report Type: 
  Country: None (occurrence: None)
  Receive Date: 20080229
  Receipt Date: 20070307
  Transmission Date: 20080703
  Serious: No
  Sender: FDA-Public Use
  Company Number: A0642496A

PATIENT

DRUGS (1)
  1. VALTREX [Suspect]
     Indication: GENITAL HERPES
     Dosage: 500U PER DAY
     Route: 065

REACTIONS (2)
  - DRUG INEFFECTIVE [None]
  - GENITAL HERPES [None]
